FAERS Safety Report 13796051 (Version 1)
Quarter: 2017Q3

REPORT INFORMATION
  Report Type: Spontaneous
  Country: US (occurrence: US)
  Receive Date: 20170726
  Receipt Date: 20170726
  Transmission Date: 20171127
  Serious: No
  Sender: FDA-Public Use
  Company Number: US-SHIRE-US201713878

PATIENT
  Sex: Female

DRUGS (3)
  1. XIIDRA [Suspect]
     Active Substance: LIFITEGRAST
     Indication: GLAUCOMA
  2. XIIDRA [Suspect]
     Active Substance: LIFITEGRAST
     Indication: DRY EYE
     Dosage: UNK
     Route: 047
     Dates: start: 20170621
  3. AVAPRO [Concomitant]
     Active Substance: IRBESARTAN
     Indication: PRODUCT USED FOR UNKNOWN INDICATION
     Route: 048

REACTIONS (13)
  - Eye pruritus [Unknown]
  - Instillation site reaction [Unknown]
  - Visual impairment [Unknown]
  - Vision blurred [Unknown]
  - Dysgeusia [Unknown]
  - Instillation site irritation [Unknown]
  - Conjunctival hyperaemia [Unknown]
  - Headache [Unknown]
  - Eye discharge [Unknown]
  - Eye pain [Unknown]
  - Sinusitis [Unknown]
  - Eye irritation [Unknown]
  - Instillation site lacrimation [Unknown]
